FAERS Safety Report 11352226 (Version 1)
Quarter: 2015Q3

REPORT INFORMATION
  Report Type: Spontaneous
  Country: US (occurrence: US)
  Receive Date: 20150807
  Receipt Date: 20150807
  Transmission Date: 20151125
  Serious: No
  Sender: FDA-Public Use
  Company Number: US-JNJFOC-20150210600

PATIENT
  Age: 15 Year
  Sex: Male

DRUGS (7)
  1. ZYRTEC-D [Suspect]
     Active Substance: CETIRIZINE HYDROCHLORIDE\PSEUDOEPHEDRINE HYDROCHLORIDE
     Indication: SINUSITIS
     Dosage: STARTED 6 DAYS AGO
     Route: 048
  2. MOTRIN [Concomitant]
     Active Substance: IBUPROFEN
     Indication: SINUSITIS
     Dosage: STARTED 6 DAYS AGO
     Route: 065
  3. OMNICEF [Concomitant]
     Active Substance: CEFDINIR
     Indication: SINUSITIS
     Dosage: STARTED 6 DAYS AGO
     Route: 065
  4. ZYRTEC [Concomitant]
     Active Substance: CETIRIZINE HYDROCHLORIDE
     Indication: SINUSITIS
     Route: 065
  5. ZYRTEC-D [Suspect]
     Active Substance: CETIRIZINE HYDROCHLORIDE\PSEUDOEPHEDRINE HYDROCHLORIDE
     Route: 048
  6. CHILDREN^S SUDAFED NASAL [Concomitant]
     Indication: SINUSITIS
     Dosage: DOSAGE -  4 TEASPOONS????INTERVAL - DAILY, STARTED 6 DAYS AGO
     Route: 048
  7. IBUPROFEN. [Concomitant]
     Active Substance: IBUPROFEN
     Indication: SINUSITIS
     Route: 065

REACTIONS (3)
  - Headache [Not Recovered/Not Resolved]
  - Dysphagia [Recovered/Resolved]
  - Pollakiuria [Not Recovered/Not Resolved]
